FAERS Safety Report 8348806-0 (Version None)
Quarter: 2012Q2

REPORT INFORMATION
  Report Type: 
  Country: None (occurrence: None)
  Receive Date: 20120508
  Receipt Date: 20120424
  Transmission Date: 20120825
  Serious: Yes (Death, Other)
  Sender: FDA-Public Use
  Company Number: US-2012-10484

PATIENT
  Age: 16 Year
  Sex: Female

DRUGS (6)
  1. FLUDARABINE PHOSPHATE [Suspect]
  2. SARGRAMOSTIN (SARGAMOSTIN) [Concomitant]
  3. BUSULFAN [Suspect]
  4. ALEMTUZUMAB (ALEMTUZUMAB) [Suspect]
  5. FLIGRASTIM (FLIGRASTIM) [Concomitant]
  6. TACROLIMUS [Concomitant]

REACTIONS (4)
  - LIVER TRANSPLANT [None]
  - SUDDEN DEATH [None]
  - ACUTE HEPATIC FAILURE [None]
  - PNEUMONIA PNEUMOCOCCAL [None]
